FAERS Safety Report 19969628 (Version 1)
Quarter: 2021Q4

REPORT INFORMATION
  Report Type: Spontaneous
  Country: RU (occurrence: RU)
  Receive Date: 20211019
  Receipt Date: 20211019
  Transmission Date: 20220303
  Serious: Yes (Other)
  Sender: FDA-Public Use
  Company Number: 2021A771728

PATIENT
  Age: 50 Year
  Sex: Female
  Weight: 100 kg

DRUGS (1)
  1. DAPAGLIFLOZIN [Suspect]
     Active Substance: DAPAGLIFLOZIN
     Indication: Type 2 diabetes mellitus
     Route: 048
     Dates: start: 202108

REACTIONS (2)
  - Pancreatitis [Recovered/Resolved]
  - Blood glucose increased [Recovered/Resolved]
